FAERS Safety Report 22334697 (Version 1)
Quarter: 2023Q2

REPORT INFORMATION
  Report Type: Spontaneous
  Country: US (occurrence: None)
  Receive Date: 20230517
  Receipt Date: 20230517
  Transmission Date: 20230721
  Serious: No
  Sender: FDA-Public Use
  Company Number: US-ROCHE-3119833

PATIENT
  Age: 39 Year
  Sex: Female

DRUGS (2)
  1. ACTEMRA [Suspect]
     Active Substance: TOCILIZUMAB
     Indication: Product used for unknown indication
     Dosage: 162 MG/0.9ML
     Route: 058
     Dates: start: 202205, end: 202205
  2. ACTEMRA [Suspect]
     Active Substance: TOCILIZUMAB

REACTIONS (9)
  - Heart rate increased [Unknown]
  - Nausea [Unknown]
  - Vomiting [Unknown]
  - Anxiety [Unknown]
  - Blood pressure increased [Unknown]
  - Rash [Unknown]
  - Haemoptysis [Unknown]
  - Abdominal pain [Unknown]
  - Hunger [Unknown]

NARRATIVE: CASE EVENT DATE: 20220511
